FAERS Safety Report 21714662 (Version 1)
Quarter: 2022Q4

REPORT INFORMATION
  Report Type: Spontaneous
  Country: HR (occurrence: HR)
  Receive Date: 20221212
  Receipt Date: 20221212
  Transmission Date: 20230112
  Serious: Yes (Other)
  Sender: FDA-Public Use
  Company Number: HR-Merck Healthcare KGaA-9370017

PATIENT
  Age: 53 Year
  Sex: Male

DRUGS (2)
  1. ERBITUX [Suspect]
     Active Substance: CETUXIMAB
     Indication: Adenocarcinoma
     Dosage: 500 MG/M2, 2/M
     Route: 065
     Dates: start: 202208
  2. ENCORAFENIB [Concomitant]
     Active Substance: ENCORAFENIB
     Indication: Adenocarcinoma
     Dosage: 300 MG, UNKNOWN
     Dates: start: 202208

REACTIONS (3)
  - Hydronephrosis [Not Recovered/Not Resolved]
  - Malignant neoplasm progression [Unknown]
  - Off label use [Unknown]
